FAERS Safety Report 9352966 (Version 1)
Quarter: 2013Q2

REPORT INFORMATION
  Report Type: Spontaneous
  Country: CN (occurrence: CN)
  Receive Date: 20130618
  Receipt Date: 20130618
  Transmission Date: 20140414
  Serious: Yes (Hospitalization)
  Sender: FDA-Public Use
  Company Number: CN-JNJFOC-20130606394

PATIENT
  Age: 23 Year
  Sex: Male

DRUGS (2)
  1. TYLENOL COLD [Suspect]
     Indication: PYREXIA
     Route: 048
     Dates: start: 20120830, end: 20120830
  2. AMBROXOL [Concomitant]
     Indication: PYREXIA
     Route: 065
     Dates: start: 20120830

REACTIONS (2)
  - Rash maculo-papular [Recovered/Resolved]
  - Pruritus [Unknown]
